FAERS Safety Report 6217082-7 (Version None)
Quarter: 2009Q2

REPORT INFORMATION
  Report Type: 
  Country: None (occurrence: None)
  Receive Date: 20090606
  Receipt Date: 20090401
  Transmission Date: 20091009
  Serious: Yes (Hospitalization)
  Sender: FDA-Public Use
  Company Number: GB-PFIZER INC-2009154697

PATIENT
  Age: 35 Year

DRUGS (13)
  1. SILDENAFIL CITRATE [Suspect]
     Indication: PULMONARY HYPERTENSION
     Dosage: 20 MG, 3X/DAY
     Route: 048
     Dates: start: 20060601
  2. *EPOPROSTENOL [Suspect]
     Indication: PULMONARY HYPERTENSION
     Dosage: 20 UNK, UNK
     Route: 042
     Dates: start: 20080116
  3. *EPOPROSTENOL [Suspect]
     Dosage: 7.6 UNK, UNK
     Route: 042
     Dates: start: 20050623
  4. WARFARIN [Concomitant]
     Dosage: UNK
     Route: 048
  5. DIHYDROCODEINE [Concomitant]
     Dosage: UNK
     Route: 048
     Dates: start: 20050530
  6. FUROSEMIDE [Concomitant]
     Dosage: UNK
     Route: 048
     Dates: start: 20050314
  7. SPIRONOLACTONE [Concomitant]
     Dosage: UNK
     Route: 048
     Dates: start: 20050531
  8. NORINYL 1+35 28-DAY [Concomitant]
     Dosage: UNK
     Route: 048
     Dates: start: 20050101
  9. LANSOPRAZOLE [Concomitant]
     Dosage: UNK
     Route: 048
     Dates: start: 20060101
  10. OXYGEN [Concomitant]
     Dosage: UNK
     Route: 055
     Dates: start: 20050314
  11. PARACETAMOL [Concomitant]
     Dosage: UNK
     Route: 048
     Dates: start: 20060823
  12. PROCHLORPERAZINE MALEATE [Concomitant]
     Dosage: UNK
     Route: 060
     Dates: start: 20060813
  13. IMODIUM [Concomitant]
     Dosage: UNK
     Route: 048
     Dates: start: 20060826

REACTIONS (4)
  - DEVICE BREAKAGE [None]
  - DIARRHOEA [None]
  - OEDEMA PERIPHERAL [None]
  - VOMITING [None]
